FAERS Safety Report 10841360 (Version 9)
Quarter: 2018Q2

REPORT INFORMATION
  Report Type: Report from Study
  Country: US (occurrence: US)
  Receive Date: 20150220
  Receipt Date: 20180509
  Transmission Date: 20180711
  Serious: Yes (Hospitalization, Other)
  Sender: FDA-Public Use
  Company Number: US-ROCHE-1538513

PATIENT
  Sex: Male
  Weight: 70.37 kg

DRUGS (17)
  1. PRAVASTATIN. [Concomitant]
     Active Substance: PRAVASTATIN
  2. TEMAZEPAM. [Concomitant]
     Active Substance: TEMAZEPAM
  3. FAMVIR (UNITED STATES) [Concomitant]
  4. ERIVEDGE [Suspect]
     Active Substance: VISMODEGIB
     Indication: BASAL CELL CARCINOMA
     Route: 048
     Dates: start: 20130622
  5. ERIVEDGE [Suspect]
     Active Substance: VISMODEGIB
     Route: 048
     Dates: start: 2016, end: 201702
  6. ZOLPIDEM TARTRATE. [Concomitant]
     Active Substance: ZOLPIDEM TARTRATE
  7. METOPROLOL. [Concomitant]
     Active Substance: METOPROLOL
  8. VITAMIN D3 [Concomitant]
     Active Substance: CHOLECALCIFEROL
  9. OMEPRAZOLE. [Concomitant]
     Active Substance: OMEPRAZOLE
  10. VITAMIN B12 [Concomitant]
     Active Substance: CYANOCOBALAMIN
  11. ERIVEDGE [Suspect]
     Active Substance: VISMODEGIB
     Route: 048
     Dates: start: 20130622
  12. ERIVEDGE [Suspect]
     Active Substance: VISMODEGIB
     Route: 048
     Dates: start: 20160801
  13. DIGOXIN. [Concomitant]
     Active Substance: DIGOXIN
  14. LISINOPRIL. [Concomitant]
     Active Substance: LISINOPRIL
  15. TAMSULOSIN HYDROCHLORIDE. [Concomitant]
     Active Substance: TAMSULOSIN HYDROCHLORIDE
  16. AMLODIPINE [Concomitant]
     Active Substance: AMLODIPINE BESYLATE
  17. ELIQUIS [Concomitant]
     Active Substance: APIXABAN

REACTIONS (19)
  - Productive cough [Unknown]
  - Ageusia [Recovering/Resolving]
  - Ageusia [Unknown]
  - Weight decreased [Recovering/Resolving]
  - Ulcer haemorrhage [Recovered/Resolved]
  - Rash [Unknown]
  - Prostate cancer recurrent [Unknown]
  - Acne [Not Recovered/Not Resolved]
  - Gastroenteritis viral [Unknown]
  - Memory impairment [Unknown]
  - Infectious mononucleosis [Not Recovered/Not Resolved]
  - Hypertension [Unknown]
  - Muscle spasms [Recovered/Resolved]
  - Alopecia [Not Recovered/Not Resolved]
  - Muscle spasms [Recovered/Resolved]
  - Squamous cell carcinoma [Recovered/Resolved]
  - Asthenia [Unknown]
  - Hair growth abnormal [Unknown]
  - Muscle spasms [Unknown]

NARRATIVE: CASE EVENT DATE: 2016
